FAERS Safety Report 8289847-1 (Version None)
Quarter: 2012Q2

REPORT INFORMATION
  Report Type: 
  Country: None (occurrence: None)
  Receive Date: 20120417
  Receipt Date: 20120412
  Transmission Date: 20120825
  Serious: No
  Sender: FDA-Public Use
  Company Number: US-PFIZER INC-2012092694

PATIENT
  Sex: Female

DRUGS (1)
  1. ARTHROTEC [Suspect]
     Indication: PAIN
     Dosage: 75 MG, 2X/DAY

REACTIONS (3)
  - VOMITING [None]
  - DIZZINESS [None]
  - DIARRHOEA [None]
